FAERS Safety Report 19776993 (Version 2)
Quarter: 2021Q4

REPORT INFORMATION
  Report Type: Report from Study
  Country: FR (occurrence: FR)
  Receive Date: 20210901
  Receipt Date: 20211003
  Transmission Date: 20220304
  Serious: Yes (Other)
  Sender: FDA-Public Use
  Company Number: NVSC2021FR198118

PATIENT
  Age: 36 Year
  Sex: Male
  Weight: 69 kg

DRUGS (16)
  1. NILOTINIB [Suspect]
     Active Substance: NILOTINIB
     Indication: Acute lymphocytic leukaemia
     Dosage: 800 MG
     Route: 048
     Dates: start: 20210721
  2. VINCRISTINE [Concomitant]
     Active Substance: VINCRISTINE
     Indication: Chemotherapy
     Dosage: 2 MG
     Route: 042
     Dates: start: 20210721, end: 20210721
  3. VINCRISTINE [Concomitant]
     Active Substance: VINCRISTINE
     Dosage: 2 MG
     Route: 042
     Dates: start: 20210728, end: 20210728
  4. VINCRISTINE [Concomitant]
     Active Substance: VINCRISTINE
     Dosage: 2 MG
     Route: 042
     Dates: start: 20210804, end: 20210804
  5. DEXAMETHASONE [Concomitant]
     Active Substance: DEXAMETHASONE
     Indication: Chemotherapy
     Dosage: 40 MG
     Route: 048
     Dates: start: 20210721, end: 20210722
  6. DEXAMETHASONE [Concomitant]
     Active Substance: DEXAMETHASONE
     Dosage: 40 MG
     Route: 048
     Dates: start: 20210728, end: 20210728
  7. DEXAMETHASONE [Concomitant]
     Active Substance: DEXAMETHASONE
     Dosage: 40 MG
     Route: 048
     Dates: start: 20210804, end: 20210804
  8. METHOTREXATE [Concomitant]
     Active Substance: METHOTREXATE
     Indication: Chemotherapy
     Dosage: 15 MG
     Route: 065
     Dates: start: 20210721, end: 20210721
  9. METHOTREXATE [Concomitant]
     Active Substance: METHOTREXATE
     Dosage: 15 MG
     Route: 065
     Dates: start: 20210728, end: 20210728
  10. METHOTREXATE [Concomitant]
     Active Substance: METHOTREXATE
     Dosage: 15 MG
     Route: 065
     Dates: start: 20210804, end: 20210804
  11. CYTARABINE [Concomitant]
     Active Substance: CYTARABINE
     Indication: Chemotherapy
     Dosage: 40 MG
     Route: 065
     Dates: start: 20210721, end: 20210721
  12. CYTARABINE [Concomitant]
     Active Substance: CYTARABINE
     Dosage: 40 MG
     Route: 065
     Dates: start: 20210728, end: 20210728
  13. DASATINIB [Concomitant]
     Active Substance: DASATINIB
     Indication: Prophylaxis
     Route: 065
  14. VALACYCLOVIR HYDROCHLORIDE [Concomitant]
     Active Substance: VALACYCLOVIR HYDROCHLORIDE
     Indication: Prophylaxis
     Dosage: 1 G
     Route: 048
     Dates: start: 20210716
  15. METHYLPREDNISOLONE [Concomitant]
     Active Substance: METHYLPREDNISOLONE
     Indication: Product used for unknown indication
     Dosage: 40 MG
     Route: 065
     Dates: start: 20210721, end: 20210804
  16. OMEPRAZOLE [Concomitant]
     Active Substance: OMEPRAZOLE
     Indication: Gastrooesophageal reflux disease
     Dosage: 20 MG
     Route: 048
     Dates: start: 20210716

REACTIONS (1)
  - Hepatitis [Not Recovered/Not Resolved]

NARRATIVE: CASE EVENT DATE: 20210807
